FAERS Safety Report 25529927 (Version 1)
Quarter: 2025Q3

REPORT INFORMATION
  Report Type: Spontaneous
  Country: RU (occurrence: RU)
  Receive Date: 20250708
  Receipt Date: 20250708
  Transmission Date: 20251020
  Serious: Yes (Hospitalization, Other)
  Sender: PFIZER
  Company Number: RU-PFIZER INC-PV202500080875

PATIENT
  Age: 81 Year
  Sex: Female

DRUGS (11)
  1. PALBOCICLIB [Suspect]
     Active Substance: PALBOCICLIB
     Indication: Breast cancer metastatic
     Route: 048
     Dates: start: 202101, end: 202207
  2. PALBOCICLIB [Suspect]
     Active Substance: PALBOCICLIB
  3. LETROZOLE [Concomitant]
     Active Substance: LETROZOLE
     Indication: Breast cancer metastatic
     Route: 048
  4. ENALAPRIL [Concomitant]
     Active Substance: ENALAPRIL
     Indication: Hypertension
  5. ENALAPRIL [Concomitant]
     Active Substance: ENALAPRIL
     Indication: Myocardial ischaemia
  6. ENALAPRIL [Concomitant]
     Active Substance: ENALAPRIL
     Indication: Cardiac failure chronic
  7. SPIRONOLACTONE [Concomitant]
     Active Substance: SPIRONOLACTONE
     Indication: Cardiac failure chronic
  8. METFORMIN [Concomitant]
     Active Substance: METFORMIN HYDROCHLORIDE
     Indication: Type 2 diabetes mellitus
  9. IDEBENON [Concomitant]
     Dates: start: 2022
  10. PIKAMILON [Concomitant]
  11. IRON [Concomitant]
     Active Substance: IRON
     Dates: start: 2022

REACTIONS (8)
  - Anaemia [Unknown]
  - Haematotoxicity [Recovered/Resolved]
  - Malignant neoplasm progression [Unknown]
  - Breast cancer metastatic [Unknown]
  - Dementia [Unknown]
  - Humerus fracture [Unknown]
  - Pathological fracture [Unknown]
  - Memory impairment [Unknown]

NARRATIVE: CASE EVENT DATE: 20210301
